FAERS Safety Report 25994580 (Version 3)
Quarter: 2025Q4

REPORT INFORMATION
  Report Type: Report from Study
  Country: US (occurrence: None)
  Receive Date: 20251104
  Receipt Date: 20251219
  Transmission Date: 20260119
  Serious: Yes (Life-Threatening, Other)
  Sender: UCB
  Company Number: UG-069-000008719

PATIENT

DRUGS (1)
  1. MIDAZOLAM [Suspect]
     Active Substance: MIDAZOLAM
     Indication: Seizure
     Dosage: 5 MILLIGRAM, AS NEEDED

REACTIONS (6)
  - Seizure [Unknown]
  - Overdose [Unknown]
  - Neoplasm malignant [Unknown]
  - Aphasia [Unknown]
  - Device malfunction [Unknown]
  - Drug dose omission by device [Unknown]
